FAERS Safety Report 4564306-8 (Version None)
Quarter: 2005Q1

REPORT INFORMATION
  Report Type: 
  Country: None (occurrence: None)
  Receive Date: 20050126
  Receipt Date: 20050110
  Transmission Date: 20050727
  Serious: Yes (Hospitalization)
  Sender: FDA-Public Use
  Company Number: FR_050105574

PATIENT
  Age: 54 Year
  Sex: Female
  Weight: 43 kg

DRUGS (6)
  1. GEMZAR [Suspect]
     Indication: LUNG ADENOCARCINOMA
     Dosage: 1500 MG/ 1 OTHER
     Route: 050
     Dates: start: 20041119, end: 20041119
  2. CARBOPLATIN [Concomitant]
  3. VIRACEPT [Concomitant]
  4. ZERIT [Concomitant]
  5. EPIVIR [Concomitant]
  6. BACTRIM [Concomitant]

REACTIONS (7)
  - ABDOMINAL PAIN UPPER [None]
  - HAEMATURIA [None]
  - HEADACHE [None]
  - HYPERTENSIVE CRISIS [None]
  - LEUKOCYTURIA [None]
  - POLYURIA [None]
  - RENAL TUBULAR DISORDER [None]
